FAERS Safety Report 6673399-3 (Version None)
Quarter: 2010Q2

REPORT INFORMATION
  Report Type: 
  Country: None (occurrence: None)
  Receive Date: 20100408
  Receipt Date: 20100329
  Transmission Date: 20101027
  Serious: Yes (Other)
  Sender: FDA-Public Use
  Company Number: BR-PFIZER INC-2010039953

PATIENT
  Age: 29 Year
  Sex: Female
  Weight: 50 kg

DRUGS (5)
  1. DEPO-PROVERA [Suspect]
     Indication: OFF LABEL USE
     Dosage: 150 MG, EVERY 45 DAYS
     Route: 030
     Dates: start: 20091228, end: 20091228
  2. DEPO-PROVERA [Suspect]
     Indication: MENSTRUAL DISCOMFORT
  3. SERTRALINE HCL [Suspect]
     Dosage: 50MG
     Route: 048
     Dates: start: 20100101
  4. SERTRALINE HCL [Suspect]
     Dosage: 100MG
     Route: 048
     Dates: start: 20100304
  5. PHENOBARBITAL [Concomitant]
     Indication: EPILEPSY
     Dosage: UNK
     Dates: start: 20040101

REACTIONS (8)
  - ASTHENIA [None]
  - FEELING ABNORMAL [None]
  - HEADACHE [None]
  - MENORRHAGIA [None]
  - MENSTRUATION IRREGULAR [None]
  - SWELLING [None]
  - WEIGHT FLUCTUATION [None]
  - WHITE BLOOD CELL COUNT DECREASED [None]
